FAERS Safety Report 7828403-3 (Version None)
Quarter: 2011Q4

REPORT INFORMATION
  Report Type: 
  Country: None (occurrence: None)
  Receive Date: 20111020
  Receipt Date: 20111017
  Transmission Date: 20120403
  Serious: No
  Sender: FDA-Public Use
  Company Number: US-PFIZER INC-2011238713

PATIENT
  Sex: Female

DRUGS (1)
  1. XANAX [Suspect]
     Indication: PANIC ATTACK
     Dosage: 0.25 MG, 4X/DAY
     Route: 048
     Dates: start: 20010101

REACTIONS (2)
  - NERVOUSNESS [None]
  - DRUG PRESCRIBING ERROR [None]
